FAERS Safety Report 10243909 (Version 2)
Quarter: 2014Q3

REPORT INFORMATION
  Report Type: Spontaneous
  Country: US (occurrence: US)
  Receive Date: 20140618
  Receipt Date: 20140703
  Transmission Date: 20150326
  Serious: Yes (Hospitalization, Other)
  Sender: FDA-Public Use
  Company Number: US-ASTELLAS-2014US006802

PATIENT
  Age: 60 Year
  Sex: Female

DRUGS (13)
  1. MYCOPHENOLATE MOFETIL. [Concomitant]
     Active Substance: MYCOPHENOLATE MOFETIL
     Indication: IMMUNOSUPPRESSANT DRUG THERAPY
  2. AZITHROMYCIN [Suspect]
     Active Substance: AZITHROMYCIN ANHYDROUS
     Indication: BALAMUTHIA INFECTION
     Dosage: UNK UNK, UNKNOWN FREQ.
     Route: 065
  3. ALBENDAZOLE [Suspect]
     Active Substance: ALBENDAZOLE
     Indication: IMMUNOSUPPRESSANT DRUG THERAPY
  4. METHYLPREDNISOLONE [Concomitant]
     Active Substance: METHYLPREDNISOLONE
     Indication: IMMUNOSUPPRESSANT DRUG THERAPY
  5. MYCOPHENOLATE MOFETIL. [Concomitant]
     Active Substance: MYCOPHENOLATE MOFETIL
     Indication: IMMUNOSUPPRESSION
     Dosage: UNK UNK, UNKNOWN FREQ.
     Route: 065
  6. FLUCONAZOLE. [Suspect]
     Active Substance: FLUCONAZOLE
     Indication: BALAMUTHIA INFECTION
     Route: 065
  7. METHYLPREDNISOLONE [Concomitant]
     Active Substance: METHYLPREDNISOLONE
     Indication: IMMUNE TOLERANCE INDUCTION
     Dosage: UNK UNK, UNKNOWN FREQ.
     Route: 065
  8. ALBENDAZOLE [Suspect]
     Active Substance: ALBENDAZOLE
     Indication: BALAMUTHIA INFECTION
     Dosage: UNK UNK, UNKNOWN FREQ.
     Route: 065
  9. ALEMTUZUMAB [Concomitant]
     Active Substance: ALEMTUZUMAB
     Indication: IMMUNE TOLERANCE INDUCTION
     Dosage: UNK UNK, UNKNOWN FREQ.
     Route: 065
  10. ALEMTUZUMAB [Concomitant]
     Active Substance: ALEMTUZUMAB
     Indication: IMMUNOSUPPRESSANT DRUG THERAPY
  11. PROGRAF [Suspect]
     Active Substance: TACROLIMUS\TACROLIMUS ANHYDROUS
     Indication: IMMUNOSUPPRESSION
     Dosage: UNK UNK, UNKNOWN FREQ.
     Route: 065
  12. CLARITHROMYCIN. [Suspect]
     Active Substance: CLARITHROMYCIN
     Indication: BALAMUTHIA INFECTION
     Route: 065
  13. MILTEFOSINE [Suspect]
     Active Substance: MILTEFOSINE
     Indication: BALAMUTHIA INFECTION
     Dosage: UNK, UNKNOWN FREQ.
     Route: 065

REACTIONS (9)
  - Balance disorder [Recovered/Resolved]
  - Renal failure acute [Recovered/Resolved]
  - Toxicity to various agents [Recovered/Resolved]
  - Nausea [Recovered/Resolved]
  - Vomiting [Recovered/Resolved]
  - Abasia [Recovered/Resolved]
  - Immunosuppressant drug level increased [Unknown]
  - Hallucination [Recovered/Resolved]
  - Dehydration [Recovered/Resolved]
